FAERS Safety Report 19478364 (Version 1)
Quarter: 2021Q2

REPORT INFORMATION
  Report Type: Report from Study
  Country: GB (occurrence: IE)
  Receive Date: 20210630
  Receipt Date: 20210630
  Transmission Date: 20210717
  Serious: Yes (Hospitalization)
  Sender: FDA-Public Use
  Company Number: GB-SA-2021SA160351

PATIENT
  Age: 88 Year
  Sex: Male

DRUGS (15)
  1. ISOSORBIDE MONONITRATE. [Concomitant]
     Active Substance: ISOSORBIDE MONONITRATE
     Dosage: 60 MG
     Route: 065
     Dates: start: 20200706
  2. AFLIBERCEPT [Suspect]
     Active Substance: AFLIBERCEPT
     Dosage: 50 UL, Q4W, RIGHT EYE
     Route: 031
     Dates: start: 20200416, end: 20200416
  3. AFLIBERCEPT [Suspect]
     Active Substance: AFLIBERCEPT
     Dosage: 50 UL, Q12W, RIGHT EYE
     Route: 031
     Dates: start: 20201217, end: 20201217
  4. AFLIBERCEPT [Suspect]
     Active Substance: AFLIBERCEPT
     Dosage: UNK UNK, QCY
     Route: 031
     Dates: start: 20201008, end: 20201008
  5. TAMSULOSIN [Concomitant]
     Active Substance: TAMSULOSIN
     Dosage: UNK
     Route: 065
  6. GLICLAZIDE [Concomitant]
     Active Substance: GLICLAZIDE
  7. AFLIBERCEPT [Suspect]
     Active Substance: AFLIBERCEPT
     Dosage: 50 UL, Q4W, RIGHT EYE
     Route: 031
     Dates: start: 20200514, end: 20200514
  8. ISOSORBIDE MONONITRATE. [Concomitant]
     Active Substance: ISOSORBIDE MONONITRATE
     Indication: HYPERTENSION
     Dosage: 30 MG
     Route: 065
     Dates: start: 20200706
  9. AFLIBERCEPT [Suspect]
     Active Substance: AFLIBERCEPT
     Dosage: 50 UL, Q8W, RIGHT EYE
     Route: 031
     Dates: start: 20200813, end: 20200813
  10. ASPIRIN. [Concomitant]
     Active Substance: ASPIRIN
     Indication: HYPERTENSION
     Dosage: 75 MG
     Route: 065
  11. ATORVASTATIN [Concomitant]
     Active Substance: ATORVASTATIN
     Indication: HYPERTENSION
     Dosage: 40 MG
     Route: 065
  12. ESOMEPRAZOLE. [Concomitant]
     Active Substance: ESOMEPRAZOLE MAGNESIUM
     Indication: PROPHYLAXIS
     Dosage: 40 MG
     Route: 065
  13. BISOPROLOL [Concomitant]
     Active Substance: BISOPROLOL
     Indication: HYPERTENSION
     Dosage: 5 MG
     Route: 065
  14. AFLIBERCEPT [Suspect]
     Active Substance: AFLIBERCEPT
     Indication: NEOVASCULAR AGE-RELATED MACULAR DEGENERATION
     Dosage: 50 UL, Q4W, RIGHT EYE
     Route: 031
     Dates: start: 20200625, end: 20200625
  15. AFLIBERCEPT [Suspect]
     Active Substance: AFLIBERCEPT
     Dosage: 50 UL, Q10W, RIGHT EYE
     Route: 031
     Dates: start: 20201008, end: 20201008

REACTIONS (8)
  - Pemphigoid [Recovered/Resolved]
  - Facial paralysis [Recovered/Resolved]
  - Dysarthria [Recovered/Resolved]
  - Oxygen saturation decreased [Recovered/Resolved]
  - Streptococcal bacteraemia [Recovered/Resolved]
  - Fall [Recovered/Resolved]
  - Monoparesis [Recovered/Resolved]
  - Pemphigoid [Not Recovered/Not Resolved]

NARRATIVE: CASE EVENT DATE: 20200528
